FAERS Safety Report 4621371-7 (Version None)
Quarter: 2005Q1

REPORT INFORMATION
  Report Type: 
  Country: None (occurrence: None)
  Receive Date: 20050323
  Receipt Date: 20050323
  Transmission Date: 20050727
  Serious: Yes (Hospitalization)
  Sender: FDA-Public Use
  Company Number: None

PATIENT
  Sex: Male
  Weight: 102.9665 kg

DRUGS (2)
  1. TACROLIMUS    2MG + 3MG [Suspect]
     Indication: HEPATITIS B
     Dosage: 2MG + 3MG   QAM+ QPM   ORAL
     Route: 048
     Dates: start: 20041201, end: 20041217
  2. TACROLIMUS    2MG + 3MG [Suspect]
     Indication: LIVER TRANSPLANT
     Dosage: 2MG + 3MG   QAM+ QPM   ORAL
     Route: 048
     Dates: start: 20041201, end: 20041217

REACTIONS (4)
  - DEHYDRATION [None]
  - DIARRHOEA [None]
  - DRUG TOXICITY [None]
  - RENAL FAILURE ACUTE [None]
